FAERS Safety Report 7647964-0 (Version None)
Quarter: 2011Q3

REPORT INFORMATION
  Report Type: 
  Country: None (occurrence: None)
  Receive Date: 20110801
  Receipt Date: 20110722
  Transmission Date: 20111222
  Serious: Yes (Other)
  Sender: FDA-Public Use
  Company Number: JP-GENZYME-THYM-1002590

PATIENT
  Sex: Male
  Weight: 11 kg

DRUGS (16)
  1. GRANISETRON HYDROCHLORIDE [Concomitant]
     Indication: PRODUCT USED FOR UNKNOWN INDICATION
     Dosage: 0.6 MG, BID
     Dates: start: 20110616, end: 20110620
  2. RED BLOOD CELLS, CONCENTRATED [Concomitant]
     Indication: PRODUCT USED FOR UNKNOWN INDICATION
     Dosage: 1 IU, UNK
     Dates: start: 20110409
  3. ACYCLOVIR [Concomitant]
     Indication: PRODUCT USED FOR UNKNOWN INDICATION
     Dosage: 50 MG, BID
     Dates: start: 20110510
  4. MICAFUNGIN SODIUM [Concomitant]
     Indication: PRODUCT USED FOR UNKNOWN INDICATION
     Dosage: 15 MG, QD
     Dates: start: 20110510
  5. METHYLPREDNISOLONE SODIUM SUCCINATE [Concomitant]
     Indication: PROPHYLAXIS
  6. MEROPENEM [Concomitant]
     Indication: PRODUCT USED FOR UNKNOWN INDICATION
     Dosage: 450 MG, TID
     Dates: start: 20110603, end: 20110704
  7. ARBEKACIN SULFATE [Concomitant]
     Indication: PRODUCT USED FOR UNKNOWN INDICATION
     Dosage: 50 MG, QD
     Dates: start: 20110618, end: 20110627
  8. THYMOGLOBULIN [Suspect]
     Indication: BONE MARROW CONDITIONING REGIMEN
     Dosage: 2.5 MG/KG, QD
     Route: 042
     Dates: start: 20110618, end: 20110619
  9. ALPROSTADIL [Concomitant]
     Indication: PROPHYLAXIS
     Dosage: 8 MCG, QD
     Dates: start: 20110510
  10. THROMBOMODULIN ALFA [Concomitant]
     Indication: PRODUCT USED FOR UNKNOWN INDICATION
     Dosage: 4480 IU, QD
     Dates: start: 20110611, end: 20110624
  11. DALTEPARIN SODIUM [Concomitant]
     Indication: PROPHYLAXIS
     Dosage: 900 IU, QD
     Dates: start: 20110510
  12. FLUDARA [Concomitant]
     Indication: STEM CELL TRANSPLANT
     Dosage: 14 MG, QD
     Dates: start: 20110616, end: 20110619
  13. AMIKACIN SULFATE [Concomitant]
     Indication: PRODUCT USED FOR UNKNOWN INDICATION
     Dosage: 50 MG, QD
     Dates: start: 20110615, end: 20110618
  14. METHYLPREDNISOLONE SODIUM SUCCINATE [Concomitant]
     Indication: ALLERGY PROPHYLAXIS
     Dosage: 35 MG, BID
     Dates: start: 20110618
  15. PLATELETS, CONCENTRATED [Concomitant]
     Indication: PRODUCT USED FOR UNKNOWN INDICATION
     Dosage: 10 IU, UNK
     Dates: start: 20110406
  16. OMEPRAZOLE [Concomitant]
     Indication: PRODUCT USED FOR UNKNOWN INDICATION
     Dosage: 5 MG, BID
     Dates: start: 20110529

REACTIONS (4)
  - PYREXIA [None]
  - BLOOD BILIRUBIN INCREASED [None]
  - ACUTE GRAFT VERSUS HOST DISEASE IN LIVER [None]
  - TRANSAMINASES INCREASED [None]
